FAERS Safety Report 20136952 (Version 2)
Quarter: 2021Q4

REPORT INFORMATION
  Report Type: Report from Study
  Country: US (occurrence: US)
  Receive Date: 20211201
  Receipt Date: 20211214
  Transmission Date: 20220303
  Serious: Yes (Death, Hospitalization)
  Sender: FDA-Public Use
  Company Number: US-EXELIXIS-CABO-21046687

PATIENT
  Sex: Female
  Weight: 107.48 kg

DRUGS (32)
  1. CABOMETYX [Suspect]
     Active Substance: CABOZANTINIB S-MALATE
     Indication: Renal cell carcinoma
     Dosage: 40 MG, QD
     Route: 048
     Dates: start: 20210915
  2. CABOMETYX [Suspect]
     Active Substance: CABOZANTINIB S-MALATE
     Indication: Metastases to retroperitoneum
  3. CABOMETYX [Suspect]
     Active Substance: CABOZANTINIB S-MALATE
     Indication: Metastases to peritoneum
  4. ALENDRONATE [Concomitant]
     Active Substance: ALENDRONATE SODIUM
  5. AMIODARONE [Concomitant]
     Active Substance: AMIODARONE
  6. ANORO ELLIPTA [Concomitant]
     Active Substance: UMECLIDINIUM BROMIDE\VILANTEROL TRIFENATATE
  7. AZITHROMYCIN [Concomitant]
     Active Substance: AZITHROMYCIN
  8. BENZONATATE [Concomitant]
     Active Substance: BENZONATATE
  9. BUSPIRONE HCL [Concomitant]
     Active Substance: BUSPIRONE HYDROCHLORIDE
  10. CLINDAMYCIN [Concomitant]
     Active Substance: CLINDAMYCIN
  11. DOXYCYCLINE [Concomitant]
     Active Substance: DOXYCYCLINE
  12. ELIQUIS [Concomitant]
     Active Substance: APIXABAN
  13. FERROUS SULFATE [Concomitant]
     Active Substance: FERROUS SULFATE
  14. FLUTICASONE [Concomitant]
     Active Substance: FLUTICASONE
  15. FUROSEMIDE [Concomitant]
     Active Substance: FUROSEMIDE
  16. INSULIN LISPRO [Concomitant]
     Active Substance: INSULIN LISPRO
  17. LANTUS [Concomitant]
     Active Substance: INSULIN GLARGINE
  18. LEVALBUTEROL HYDROCHLORIDE [Concomitant]
     Active Substance: LEVALBUTEROL HYDROCHLORIDE
  19. LEVOTHYROXINE [Concomitant]
     Active Substance: LEVOTHYROXINE
  20. LIDOCAINE [Concomitant]
     Active Substance: LIDOCAINE
  21. MAGNESIUM OXIDE [Concomitant]
     Active Substance: MAGNESIUM OXIDE
  22. METOPROLOL [Concomitant]
     Active Substance: METOPROLOL
  23. MIRTAZAPINE [Concomitant]
     Active Substance: MIRTAZAPINE
  24. MUCINEX [Concomitant]
     Active Substance: GUAIFENESIN
  25. COVID-19 VACCINE NOS [Concomitant]
     Active Substance: COVID-19 VACCINE NOS
  26. PREDNISONE [Concomitant]
     Active Substance: PREDNISONE
  27. PREGABALIN [Concomitant]
     Active Substance: PREGABALIN
  28. RAMIPRIL [Concomitant]
     Active Substance: RAMIPRIL
  29. ROSUVASTATIN [Concomitant]
     Active Substance: ROSUVASTATIN
  30. SENNA-S [Concomitant]
     Active Substance: DOCUSATE SODIUM\SENNOSIDES
  31. SSD [Concomitant]
     Active Substance: SILVER SULFADIAZINE
  32. VITAMIN D3 [Concomitant]
     Active Substance: CHOLECALCIFEROL

REACTIONS (3)
  - Blister [Unknown]
  - Oral mucosal blistering [Unknown]
  - Death [Fatal]
